FAERS Safety Report 6675246-2 (Version None)
Quarter: 2010Q2

REPORT INFORMATION
  Report Type: 
  Country: None (occurrence: None)
  Receive Date: 20100409
  Receipt Date: 20100331
  Transmission Date: 20101027
  Serious: Yes (Death, Hospitalization, Other)
  Sender: FDA-Public Use
  Company Number: US-AMGEN-QUU398605

PATIENT
  Sex: Female
  Weight: 50.4 kg

DRUGS (18)
  1. NPLATE [Suspect]
     Indication: IDIOPATHIC THROMBOCYTOPENIC PURPURA
     Route: 058
     Dates: start: 20090309, end: 20090330
  2. ARANESP [Concomitant]
     Indication: ANAEMIA OF MALIGNANT DISEASE
     Route: 058
     Dates: start: 20090330, end: 20090330
  3. HYCAMTIN [Concomitant]
     Dates: start: 20090316, end: 20090323
  4. ULTRAM [Concomitant]
     Route: 048
     Dates: start: 20090316
  5. DEXAMETHASONE [Concomitant]
     Route: 048
     Dates: start: 20090209
  6. ZOFRAN [Concomitant]
     Route: 048
     Dates: start: 20090209
  7. AMBIEN [Concomitant]
     Route: 048
     Dates: start: 20091117
  8. NYSTATIN [Concomitant]
     Dates: start: 20080919, end: 20090410
  9. LEVOTHYROXINE SODIUM [Concomitant]
     Dates: start: 20080725, end: 20090410
  10. LOMOTIL [Concomitant]
     Dates: start: 20080502, end: 20090410
  11. ATIVAN [Concomitant]
     Dates: start: 20080102
  12. MAGNESIUM OXIDE [Concomitant]
     Dates: start: 20071210, end: 20090410
  13. VITAMIN B COMPLEX CAP [Concomitant]
     Route: 048
     Dates: end: 20090410
  14. TYLENOL-500 [Concomitant]
  15. MULTIVITAMIN [Concomitant]
     Route: 048
     Dates: end: 20090410
  16. MULTI-VITAMINS [Concomitant]
     Route: 048
     Dates: end: 20090410
  17. POTASSIUM CHLORIDE [Concomitant]
     Dates: end: 20090410
  18. COMPAZINE [Concomitant]
     Route: 048

REACTIONS (7)
  - ANAEMIA [None]
  - DEHYDRATION [None]
  - DRUG INEFFECTIVE [None]
  - FALL [None]
  - HYPOKALAEMIA [None]
  - SKIN LACERATION [None]
  - SMALL CELL LUNG CANCER METASTATIC [None]
